FAERS Safety Report 9224957 (Version 1)
Quarter: 2013Q2

REPORT INFORMATION
  Report Type: Spontaneous
  Country: US (occurrence: None)
  Receive Date: 20130410
  Receipt Date: 20130410
  Transmission Date: 20140414
  Serious: Yes (Disabling)
  Sender: FDA-Public Use
  Company Number: None

PATIENT
  Age: 75 Year
  Sex: Female
  Weight: 61.24 kg

DRUGS (1)
  1. IMIQUIMOD [Suspect]
     Indication: SKIN DISORDER
     Dosage: SPREAD CREAM ON AREA CHEST 5X WK FOR 6 WKS
     Dates: start: 20121231, end: 20130114

REACTIONS (11)
  - Application site ulcer [None]
  - Application site vesicles [None]
  - Application site pruritus [None]
  - Application site discharge [None]
  - Application site haemorrhage [None]
  - Rash [None]
  - Pyrexia [None]
  - Influenza [None]
  - Night sweats [None]
  - Application site erythema [None]
  - Chemical injury [None]
